FAERS Safety Report 4519810-5 (Version None)
Quarter: 2004Q4

REPORT INFORMATION
  Report Type: 
  Country: None (occurrence: None)
  Receive Date: 20041207
  Receipt Date: 20041124
  Transmission Date: 20050328
  Serious: Yes (Other)
  Sender: FDA-Public Use
  Company Number: IE-JNJFOC-20041106210

PATIENT
  Sex: Female

DRUGS (2)
  1. SPORANOX [Suspect]
     Indication: FUNGAL INFECTION
     Route: 049
     Dates: start: 20041001, end: 20041012
  2. DAKTACORT [Concomitant]
     Route: 065

REACTIONS (3)
  - ERYTHEMA MULTIFORME [None]
  - MALAISE [None]
  - PRURITUS [None]
